FAERS Safety Report 14821955 (Version 2)
Quarter: 2018Q2

REPORT INFORMATION
  Report Type: Spontaneous
  Country: FR (occurrence: FR)
  Receive Date: 20180427
  Receipt Date: 20180508
  Transmission Date: 20180711
  Serious: Yes (Hospitalization, Other)
  Sender: FDA-Public Use
  Company Number: FR-GILEAD-2018-0335281

PATIENT
  Age: 78 Year
  Sex: Male
  Weight: 93 kg

DRUGS (5)
  1. VALSARTAN. [Concomitant]
     Active Substance: VALSARTAN
     Dosage: 20 MG, QD
     Dates: start: 20130102
  2. RIBAVIRIN. [Suspect]
     Active Substance: RIBAVIRIN
     Indication: HEPATITIS C
     Dosage: 1200 MG, QD
     Route: 048
     Dates: start: 20151008, end: 20151231
  3. FUROSEMIDE. [Concomitant]
     Active Substance: FUROSEMIDE
     Dosage: 20 MG, QD
     Dates: start: 20130102
  4. BISOPROLOL [Concomitant]
     Active Substance: BISOPROLOL
     Dosage: 10 MG, QD
     Dates: start: 20120726
  5. HARVONI [Suspect]
     Active Substance: LEDIPASVIR\SOFOSBUVIR
     Indication: HEPATITIS C
     Dosage: 90/400 MG, ONE PER DAY
     Route: 065
     Dates: start: 20151008, end: 20151231

REACTIONS (7)
  - Cardiac failure [Recovered/Resolved with Sequelae]
  - Hepatocellular carcinoma [Unknown]
  - Interstitial lung disease [Unknown]
  - Bronchopneumopathy [Recovered/Resolved]
  - Urinary tract infection [Unknown]
  - Acute kidney injury [Unknown]
  - Atrial fibrillation [Recovered/Resolved with Sequelae]

NARRATIVE: CASE EVENT DATE: 2016
